FAERS Safety Report 23105288 (Version 1)
Quarter: 2023Q4

REPORT INFORMATION
  Report Type: Spontaneous
  Country: US (occurrence: None)
  Receive Date: 20231023
  Receipt Date: 20231023
  Transmission Date: 20240110
  Serious: Yes (Hospitalization)
  Sender: FDA-Public Use
  Company Number: None

PATIENT
  Age: 32 Year
  Sex: Male

DRUGS (2)
  1. EPINEPHRINE [Suspect]
     Active Substance: EPINEPHRINE
     Indication: Focal dyscognitive seizures
     Dosage: FREQUENCY : AS NEEDED;?
     Route: 030
     Dates: start: 202008
  2. PRIVIGEN SDV [Concomitant]

REACTIONS (2)
  - Suicide attempt [None]
  - Blood glucose increased [None]

NARRATIVE: CASE EVENT DATE: 20231002
